FAERS Safety Report 15635757 (Version 1)
Quarter: 2018Q4

REPORT INFORMATION
  Report Type: Spontaneous
  Country: CA (occurrence: CA)
  Receive Date: 20181120
  Receipt Date: 20181120
  Transmission Date: 20190205
  Serious: Yes (Other)
  Sender: FDA-Public Use
  Company Number: CA-TEVA-2018-CA-978198

PATIENT
  Age: 59 Year
  Sex: Female

DRUGS (8)
  1. APO-GLICLAZIDE MR [Concomitant]
     Active Substance: GLICLAZIDE
  2. APO-SALVENT CFC FREE [Concomitant]
     Route: 065
  3. ASA [Concomitant]
     Active Substance: ASPIRIN
     Route: 065
  4. ROSUVASTATIN. [Suspect]
     Active Substance: ROSUVASTATIN
     Indication: HYPERCHOLESTEROLAEMIA
  5. COVERSYL (8MG TABLET) [Concomitant]
  6. PANTOPRAZOLE T [Concomitant]
  7. SANDOZ AMLODIPINE [Concomitant]
     Active Substance: AMLODIPINE MALEATE
  8. SANDOZ FENOFIBRATE E [Concomitant]

REACTIONS (2)
  - Chest pain [Recovered/Resolved]
  - Blood pressure increased [Recovered/Resolved]
